FAERS Safety Report 22995612 (Version 3)
Quarter: 2024Q2

REPORT INFORMATION
  Report Type: Report from Study
  Country: US (occurrence: US)
  Receive Date: 20230927
  Receipt Date: 20240401
  Transmission Date: 20240716
  Serious: Yes (Hospitalization, Other)
  Sender: FDA-Public Use
  Company Number: US-BAUSCH-BL-2023-014153

PATIENT
  Age: 81 Year
  Sex: Male
  Weight: 77.18 kg

DRUGS (18)
  1. XIFAXAN [Suspect]
     Active Substance: RIFAXIMIN
     Indication: Hepatic cirrhosis
     Route: 048
     Dates: start: 20230803, end: 20230809
  2. XIFAXAN [Suspect]
     Active Substance: RIFAXIMIN
     Indication: Hepatic encephalopathy
  3. TYLENOL [Concomitant]
     Active Substance: ACETAMINOPHEN
     Indication: Product used for unknown indication
     Dosage: TAKE TWO TABLET BY MOUTH EVERY 6 HRS AS NEEDED
     Route: 048
     Dates: start: 20230630
  4. ASPIRIN [Concomitant]
     Active Substance: ASPIRIN
     Indication: Peripheral vascular disorder
     Dosage: TAKE WITH FOOD
     Route: 048
  5. ASPIRIN [Concomitant]
     Active Substance: ASPIRIN
     Indication: Coronary artery disease
  6. DULCOLAX (BISACODYL) [Concomitant]
     Active Substance: BISACODYL
     Indication: Product used for unknown indication
     Dosage: INSERT OR APPLY ONE SUPPOSITORY TO RECTAL AREA AS DIRECTED THE TIMES DAILY AS NEEDED.
     Route: 054
  7. SINEMET [Concomitant]
     Active Substance: CARBIDOPA\LEVODOPA
     Indication: Parkinson^s disease
     Dosage: 25/100 TAKE ONE TABLET BY MOUTH THREE TIMES DAILY.MG TABLET
     Route: 048
     Dates: start: 20230803
  8. REFRESH PLUS [Concomitant]
     Active Substance: CARBOXYMETHYLCELLULOSE SODIUM
     Indication: Product used for unknown indication
     Dosage: APPLY ONE DROP TO BOTH EYES AS NEEDED.
     Route: 047
  9. COREG [Concomitant]
     Active Substance: CARVEDILOL
     Indication: Hypertension
     Dosage: TAKE WITH MEALS. HOLD FOR SBP LESS THAN 110 OR DBP LESS THAN 60
     Route: 048
     Dates: start: 20230803
  10. COLLAGENASE SANTYL [Concomitant]
     Active Substance: COLLAGENASE CLOSTRIDIUM HISTOLYTICUM
     Indication: Product used for unknown indication
     Dosage: APPLY ONE G TOPICALLY TO AFFECTED AREA DAILY. APPLY TO THIGHS 250 UNIT/G TOPICAL OINTMENT
     Route: 061
     Dates: start: 20230808
  11. FLEXERIL [Concomitant]
     Active Substance: CYCLOBENZAPRINE HYDROCHLORIDE
     Indication: Product used for unknown indication
     Dosage: TAKE ONE TABLET BY MOUTH THREE TIMES DALLY AS NEEDED
     Route: 048
     Dates: start: 20230803
  12. FERROUS SULFATE [Concomitant]
     Active Substance: FERROUS SULFATE
     Indication: Product used for unknown indication
     Dosage: TAKE ON AN EMPTY STOMACH ATLEAST 1 HR BEFORE OR 2 HRS AFTER FOOD, 65 MG IRON
     Route: 048
     Dates: start: 20230307
  13. NEURONTIN [Concomitant]
     Active Substance: GABAPENTIN
     Indication: Product used for unknown indication
     Dosage: TAKE ONE TABLET BY MOUTH EVERY 8 HRS
     Route: 048
     Dates: start: 20230803
  14. NORCO [Concomitant]
     Active Substance: ACETAMINOPHEN\HYDROCODONE BITARTRATE
     Indication: Pain
     Dosage: 5/32 MG TAB TAKE ONE TABLET BY MOUTH EVERY 6 HRS
     Route: 048
  15. LACTULOSE [Concomitant]
     Active Substance: LACTULOSE
     Indication: Liver disorder
     Dosage: 10 GRAM/15 ML SOLUTION
     Route: 048
     Dates: start: 20230808, end: 20230907
  16. LACTULOSE [Concomitant]
     Active Substance: LACTULOSE
     Indication: Hepatic cirrhosis
     Route: 048
  17. PRILOSEC [Concomitant]
     Active Substance: OMEPRAZOLE MAGNESIUM
     Indication: Product used for unknown indication
     Dosage: TAKE ONE CAPSULE BY MOUTH BEFORE BREAKFAST
     Route: 048
     Dates: start: 20230803
  18. MIRALAX [Concomitant]
     Active Substance: POLYETHYLENE GLYCOL 3350
     Indication: Intestinal obstruction
     Dosage: TAKE 1 PACKET BY MOUTH DAILY
     Route: 048
     Dates: end: 20230908

REACTIONS (5)
  - Hepatic encephalopathy [Unknown]
  - Condition aggravated [Unknown]
  - Chronic kidney disease [Unknown]
  - Product use issue [Unknown]
  - Product prescribing issue [Unknown]

NARRATIVE: CASE EVENT DATE: 20230901
